FAERS Safety Report 4819170-6 (Version None)
Quarter: 2005Q4

REPORT INFORMATION
  Report Type: 
  Country: None (occurrence: None)
  Receive Date: 20051012
  Receipt Date: 20050909
  Transmission Date: 20060501
  Serious: No
  Sender: FDA-Public Use
  Company Number: A03200502877

PATIENT
  Sex: Female

DRUGS (1)
  1. UROXATRAL [Suspect]
     Indication: MICTURITION DISORDER
     Dosage: ORAL
     Route: 048

REACTIONS (1)
  - OFF LABEL USE [None]
